FAERS Safety Report 19799552 (Version 1)
Quarter: 2021Q3

REPORT INFORMATION
  Report Type: Spontaneous
  Country: NL (occurrence: NL)
  Receive Date: 20210907
  Receipt Date: 20210907
  Transmission Date: 20211014
  Serious: Yes (Other)
  Sender: FDA-Public Use
  Company Number: NL-MYLANLABS-2021M1058129

PATIENT
  Age: 52 Month
  Sex: Male

DRUGS (16)
  1. ISOTRETINOIN. [Suspect]
     Active Substance: ISOTRETINOIN
     Dosage: 160 MILLIGRAM/SQ. METER, QD, ON 14 CONSECUTIVE DAYS (COURSE 3)
     Route: 065
  2. ISOTRETINOIN. [Suspect]
     Active Substance: ISOTRETINOIN
     Dosage: 160 MILLIGRAM/SQ. METER, QD,ON 14 CONSECUTIVE DAYS (COURSE 2)
     Route: 065
  3. QARZIBA [Suspect]
     Active Substance: DINUTUXIMAB BETA
     Dosage: (8 HOUR INFUSION (MAX 16 HOURS) ON 5 CONSECUTIVE DAYS, COURSE 3)
     Route: 042
  4. INTERLEUKIN?2 [Suspect]
     Active Substance: ALDESLEUKIN
     Dosage: 4.5 MILLION IU/M2/DAY ON 5 CONSECUTIVE DAYS BY IV CONTINUOUS INFUSION IN WEEK 2
     Route: 042
  5. SARGRAMOSTIM [Suspect]
     Active Substance: SARGRAMOSTIM
     Indication: NEUROBLASTOMA
     Dosage: 250 MICROGRAM/SQ. METER, QD,  ON 14 CONSECUTIVE DAYS BY SUBCUTANEOUS ROUTE (COURSE 1)
     Route: 058
  6. SARGRAMOSTIM [Suspect]
     Active Substance: SARGRAMOSTIM
     Dosage: 250 MICROGRAM/SQ. METER, QD ON 14 CONSECUTIVE DAYS BY SUBCUTANEOUS ROUTE (COURSE 3)
     Route: 058
  7. SARGRAMOSTIM [Suspect]
     Active Substance: SARGRAMOSTIM
     Dosage: 250 MICROGRAM/SQ. METER, QD, ON 14 CONSECUTIVE DAYS BY SUBCUTANEOUS ROUTE (COURSE 5)
     Route: 058
  8. QARZIBA [Suspect]
     Active Substance: DINUTUXIMAB BETA
     Dosage: (8 HOUR INFUSION (MAX 16 HOURS) ON 5 CONSECUTIVE DAYS, COURSE 5)
     Route: 042
  9. ISOTRETINOIN. [Suspect]
     Active Substance: ISOTRETINOIN
     Indication: NEUROBLASTOMA
     Dosage: 160 MILLIGRAM/SQ. METER, QD, ON 14 CONSECUTIVE DAYS (COURSE 1)
     Route: 065
  10. ISOTRETINOIN. [Suspect]
     Active Substance: ISOTRETINOIN
     Dosage: 160 MILLIGRAM/SQ. METER, QD, ON 14 CONSECUTIVE DAYS (COURSE 5)
     Route: 065
  11. QARZIBA [Suspect]
     Active Substance: DINUTUXIMAB BETA
     Indication: NEUROBLASTOMA
     Dosage: (8 HOUR INFUSION (MAX 16 HOURS) ON 5 CONSECUTIVE DAYS, COURSE 1)
     Route: 042
  12. QARZIBA [Suspect]
     Active Substance: DINUTUXIMAB BETA
     Dosage: (8 HOUR INFUSION (MAX 16 HOURS) ON 5 CONSECUTIVE DAYS, COURSE 2)
     Route: 042
  13. QARZIBA [Suspect]
     Active Substance: DINUTUXIMAB BETA
     Dosage: (8 HOUR INFUSION (MAX 16 HOURS) ON 5 CONSECUTIVE DAYS, COURSE 4)
     Route: 042
  14. ISOTRETINOIN. [Suspect]
     Active Substance: ISOTRETINOIN
     Dosage: 160 MILLIGRAM/SQ. METER, QD, ON 14 CONSECUTIVE DAYS (COURSE 4)
     Route: 065
  15. ISOTRETINOIN. [Suspect]
     Active Substance: ISOTRETINOIN
     Dosage: 160 MILLIGRAM/SQ. METER, QD, ON 14 CONSECUTIVE DAYS (COURSE 6)
     Route: 065
  16. INTERLEUKIN?2 [Suspect]
     Active Substance: ALDESLEUKIN
     Indication: NEUROBLASTOMA
     Dosage: 3.0 MILLION IU/M2/DAY ON 4 CONSECUTIVE DAYS BY IV CONTINUOUS INFUSION IN WEEK 1
     Route: 042

REACTIONS (4)
  - Pyrexia [Unknown]
  - Pain [Unknown]
  - Cough [Unknown]
  - Device related bacteraemia [Unknown]
